FAERS Safety Report 7579005-8 (Version None)
Quarter: 2011Q2

REPORT INFORMATION
  Report Type: 
  Country: None (occurrence: None)
  Receive Date: 20110628
  Receipt Date: 20110616
  Transmission Date: 20111010
  Serious: Yes (Hospitalization)
  Sender: FDA-Public Use
  Company Number: PHHY2011TR52936

PATIENT
  Age: 50 Year
  Sex: Male

DRUGS (7)
  1. PREDNISOLONE [Concomitant]
     Dosage: 1 MG/KG, UNK
  2. CORASPIN [Concomitant]
     Dosage: 100 MG, UNK
  3. DIPHENHYDRAMINE HCL [Concomitant]
     Dosage: 50 MG, QID
  4. NITROGLYCERIN [Concomitant]
     Dosage: 5 MG, UNK
     Route: 060
  5. LANSOPRAZOLE [Suspect]
     Indication: DYSPEPSIA
     Dosage: 30 MG, UNK
  6. ENOXAPARIN [Concomitant]
     Dosage: 60 MG, BID
  7. RANITIDINE [Concomitant]
     Dosage: 50 MG, BID

REACTIONS (12)
  - LARYNGEAL OEDEMA [None]
  - CARDIOMYOPATHY [None]
  - MYOCARDIAL ISCHAEMIA [None]
  - KOUNIS SYNDROME [None]
  - LEFT VENTRICULAR HYPERTROPHY [None]
  - CHEST DISCOMFORT [None]
  - VENTRICULAR HYPOKINESIA [None]
  - PERICARDIAL EFFUSION [None]
  - PERIORBITAL OEDEMA [None]
  - CARDIAC ENZYMES INCREASED [None]
  - RASH PRURITIC [None]
  - DIARRHOEA [None]
